FAERS Safety Report 5597970-5 (Version None)
Quarter: 2008Q1

REPORT INFORMATION
  Report Type: 
  Country: None (occurrence: None)
  Receive Date: 20080116
  Receipt Date: 20080108
  Transmission Date: 20080703
  Serious: Yes (Hospitalization)
  Sender: FDA-Public Use
  Company Number: GXKR2008GB00631

PATIENT
  Age: 63 Year
  Sex: Female

DRUGS (12)
  1. AMOXICILLIN TRIHYDRATE [Suspect]
     Dosage: 500 MG, TID, ORAL
     Route: 048
     Dates: start: 20071217, end: 20071222
  2. WARFARIN SODIUM [Suspect]
     Dosage: ORAL
     Route: 048
     Dates: end: 20071223
  3. ALENDRONATE SODIUM [Concomitant]
  4. ACETYLSALICYLIC ACID SRT [Concomitant]
  5. ATENOLOL [Concomitant]
  6. BUMETANIDE [Concomitant]
  7. CALCICHEW D3 (CALCIUM CARBONATE, COLECALCIFEROL) [Concomitant]
  8. INFLIXIMAB (INFLIXIMAB) [Concomitant]
  9. MESALAMINE [Concomitant]
  10. PREDNISONE [Concomitant]
  11. RAMIPRIL [Concomitant]
  12. TRIMPRAMINE (TRIMPRAMINE) [Concomitant]

REACTIONS (7)
  - ABDOMINAL DISTENSION [None]
  - ABDOMINAL PAIN LOWER [None]
  - CONTUSION [None]
  - DRUG INTERACTION [None]
  - HAEMATOMA [None]
  - INTERNATIONAL NORMALISED RATIO INCREASED [None]
  - RECTAL HAEMORRHAGE [None]
